FAERS Safety Report 4547057-5 (Version None)
Quarter: 2005Q1

REPORT INFORMATION
  Report Type: 
  Country: None (occurrence: None)
  Receive Date: 20050107
  Receipt Date: 20041229
  Transmission Date: 20050727
  Serious: Yes (Hospitalization, Other)
  Sender: FDA-Public Use
  Company Number: PHNU2004DE04328

PATIENT
  Sex: Female

DRUGS (1)
  1. CLOZARIL [Suspect]
     Indication: SCHIZOPHRENIA
     Dosage: UNKNOWN
     Dates: start: 20040101, end: 20041201

REACTIONS (6)
  - AGGRESSION [None]
  - BLOOD CREATINE PHOSPHOKINASE INCREASED [None]
  - ELECTROCARDIOGRAM ABNORMAL [None]
  - ELECTROCARDIOGRAM T WAVE INVERSION [None]
  - MYOGLOBINURIA [None]
  - RHABDOMYOLYSIS [None]
